FAERS Safety Report 5466684-4 (Version None)
Quarter: 2007Q3

REPORT INFORMATION
  Report Type: 
  Country: None (occurrence: None)
  Receive Date: 20070920
  Receipt Date: 20070906
  Transmission Date: 20080115
  Serious: Yes (Hospitalization)
  Sender: FDA-Public Use
  Company Number: 161110ISR

PATIENT
  Sex: Male

DRUGS (1)
  1. AZILECT [Suspect]
     Indication: PARKINSON'S DISEASE
     Dosage: 1 MG (1 MG, 1 IN 1 D) ORAL
     Route: 048
     Dates: start: 20070101, end: 20070101

REACTIONS (4)
  - BLOOD ANTIDIURETIC HORMONE DECREASED [None]
  - CONDITION AGGRAVATED [None]
  - HYPONATRAEMIA [None]
  - PARKINSON'S DISEASE [None]
